FAERS Safety Report 12465987 (Version 3)
Quarter: 2016Q2

REPORT INFORMATION
  Report Type: Report from Study
  Country: DE (occurrence: DE)
  Receive Date: 20160614
  Receipt Date: 20160621
  Transmission Date: 20160815
  Serious: Yes (Hospitalization)
  Sender: FDA-Public Use
  Company Number: DE-BAXALTA-2016BLT004173

PATIENT
  Age: 10 Year
  Sex: Male
  Weight: 32 kg

DRUGS (1)
  1. FEIBA [Suspect]
     Active Substance: ANTI-INHIBITOR COAGULANT COMPLEX
     Indication: FACTOR VIII DEFICIENCY
     Dosage: 1000 IU, 3X A WEEK
     Route: 042
     Dates: start: 20160317

REACTIONS (4)
  - Haemarthrosis [Recovered/Resolved]
  - Joint swelling [Unknown]
  - Fall [Unknown]
  - Arthralgia [Unknown]

NARRATIVE: CASE EVENT DATE: 20160505
